FAERS Safety Report 4990615-4 (Version None)
Quarter: 2006Q2

REPORT INFORMATION
  Report Type: 
  Country: None (occurrence: None)
  Receive Date: 20060501
  Receipt Date: 20060501
  Transmission Date: 20061013
  Serious: Yes (Hospitalization)
  Sender: FDA-Public Use
  Company Number: None

PATIENT
  Sex: Female
  Weight: 81.9 kg

DRUGS (1)
  1. TEMOZOLOMIDE [Suspect]
     Indication: ASTROCYTOMA, LOW GRADE
     Dosage: 4900 MG
     Dates: start: 20060315, end: 20060418

REACTIONS (2)
  - CONVULSION [None]
  - THROMBOCYTOPENIA [None]
